FAERS Safety Report 8373660-0 (Version None)
Quarter: 2012Q2

REPORT INFORMATION
  Report Type: 
  Country: None (occurrence: None)
  Receive Date: 20120521
  Receipt Date: 20120511
  Transmission Date: 20120825
  Serious: Yes (Other)
  Sender: FDA-Public Use
  Company Number: NO-BAYER-2012-043447

PATIENT
  Age: 47 Year
  Sex: Female

DRUGS (2)
  1. MIRENA [Suspect]
     Indication: MENORRHAGIA
     Dosage: 20 MCG/24HR, CONT
     Route: 015
     Dates: start: 20060111, end: 20120504
  2. MIRENA [Suspect]

REACTIONS (3)
  - CERVICAL DYSPLASIA [None]
  - MUCOSAL HAEMORRHAGE [None]
  - POST PROCEDURAL HAEMORRHAGE [None]
